FAERS Safety Report 8402418-9 (Version None)
Quarter: 2012Q2

REPORT INFORMATION
  Report Type: 
  Country: None (occurrence: None)
  Receive Date: 20120529
  Receipt Date: 20090107
  Transmission Date: 20120825
  Serious: Yes (Hospitalization)
  Sender: FDA-Public Use
  Company Number: 005247

PATIENT
  Age: 80 Year
  Sex: Male
  Weight: 33.8 kg

DRUGS (8)
  1. DEPAS (ETIZOLAM) [Concomitant]
  2. LENDORM [Concomitant]
  3. PLETAL [Suspect]
     Indication: ARTERIAL STENOSIS
     Dosage: 50 MG, BID, ORAL
     Route: 048
     Dates: end: 20080706
  4. NIFEDIPINE [Suspect]
     Indication: HYPERTENSION
     Dosage: 20 MG, BID; ORAL
     Route: 048
     Dates: end: 20081213
  5. MARZULENE (AZULENE SULFONATE SODIUM) [Concomitant]
  6. GRANULE MAGNESIUM OXIDE (MAGNESIUM OXIDE) POWDER [Concomitant]
  7. PANTOSIN (PANTETHINE) POWDER [Concomitant]
  8. CILOSTAZOL [Suspect]
     Indication: ARTERIAL STENOSIS
     Dosage: 50 MG, BID, ORAL
     Route: 048
     Dates: start: 20080706, end: 20081213

REACTIONS (4)
  - THROMBOCYTOPENIA [None]
  - WHITE BLOOD CELL COUNT INCREASED [None]
  - AGRANULOCYTOSIS [None]
  - NEUTROPENIA [None]
